FAERS Safety Report 9153872 (Version 2)
Quarter: 2013Q4

REPORT INFORMATION
  Report Type: Spontaneous
  Country: US (occurrence: US)
  Receive Date: 20130311
  Receipt Date: 20131205
  Transmission Date: 20140711
  Serious: Yes (Hospitalization, Other)
  Sender: FDA-Public Use
  Company Number: US-ASTELLAS-2013US000765

PATIENT
  Age: 82 Year
  Sex: Male

DRUGS (2)
  1. PROGRAF [Suspect]
     Indication: HEART TRANSPLANT
     Dosage: 1 MG, BID
     Route: 048
     Dates: start: 2008
  2. PROGRAF [Suspect]
     Dosage: 1 MG IN AM, 0.5 MG IN PM, OTHER
     Route: 048
     Dates: start: 20090412

REACTIONS (15)
  - Peripheral artery aneurysm [Unknown]
  - Benign prostatic hyperplasia [Unknown]
  - Pulmonary embolism [Unknown]
  - Subdural haematoma [Unknown]
  - Renal failure chronic [Unknown]
  - Pleural disorder [Not Recovered/Not Resolved]
  - Hospitalisation [Unknown]
  - Pleuritic pain [Recovering/Resolving]
  - Lung consolidation [Recovering/Resolving]
  - Urinary tract infection [Recovered/Resolved]
  - Pneumonia [Recovered/Resolved]
  - Pleural effusion [Recovering/Resolving]
  - Thrombocytopenia [Unknown]
  - Deep vein thrombosis [Unknown]
  - Hypertension [Unknown]
